FAERS Safety Report 9902827 (Version 2)
Quarter: 2014Q2

REPORT INFORMATION
  Report Type: Spontaneous
  Country: GB (occurrence: GB)
  Receive Date: 20140217
  Receipt Date: 20140428
  Transmission Date: 20141212
  Serious: Yes (Death, Other)
  Sender: FDA-Public Use
  Company Number: PHFR2014GB001522

PATIENT
  Age: 79 Year
  Sex: Male

DRUGS (17)
  1. CLOZARIL [Suspect]
     Indication: SCHIZOPHRENIA
     Dosage: 12.5 MG, BID
     Route: 048
     Dates: start: 20130813
  2. CLOZARIL [Suspect]
     Indication: DEMENTIA WITH LEWY BODIES
  3. CARVEDILOL [Concomitant]
     Indication: CARDIAC FAILURE CONGESTIVE
     Dosage: 625 MG, DAILY
     Route: 048
  4. FUROSEMIDE [Concomitant]
     Indication: CARDIAC FAILURE CONGESTIVE
     Dosage: 40 MG, DAILY
     Route: 048
  5. TAMSULOSIN [Concomitant]
     Indication: PROSTATISM
     Dosage: 400 MG, DAILY
     Route: 048
  6. DUTASTERIDE [Concomitant]
     Indication: PROSTATISM
     Dosage: 500 MG, DAILY
     Route: 048
  7. SERETIDE [Concomitant]
     Indication: CHRONIC OBSTRUCTIVE PULMONARY DISEASE
     Dosage: 2 PUFFS DAILY (500)
     Route: 055
  8. VENTOLINE EVOHALER [Concomitant]
     Indication: CHRONIC OBSTRUCTIVE PULMONARY DISEASE
     Dosage: 2 PUFFS DAILY
     Route: 055
  9. RIVASTIGMINE [Concomitant]
     Indication: DEMENTIA WITH LEWY BODIES
     Dosage: 3.0 MG, (1.5 MG X 2)
     Route: 048
  10. TIOTROPIUM BROMIDE [Concomitant]
     Indication: CHRONIC OBSTRUCTIVE PULMONARY DISEASE
     Dosage: 18 MG, UNK
     Route: 055
  11. SINEMET [Concomitant]
     Indication: PARKINSON^S DISEASE
     Dosage: 3 DF, UNK (1 TABLET X 3) (25/250)
     Route: 048
  12. PARACETAMOL [Concomitant]
     Indication: PAIN
     Dosage: 1 G, QID
     Route: 048
  13. NICORANDIL [Concomitant]
     Dosage: 20 MG, BID
     Route: 048
  14. CARBOMER [Concomitant]
     Dosage: UNK UKN, TID
  15. ZOPICLONE [Concomitant]
     Indication: INSOMNIA
     Dosage: 7.5 MG, UNK
     Route: 048
  16. LAXIDO [Concomitant]
     Dosage: UNK UKN, UNK
     Route: 048
  17. MACROGOL [Concomitant]
     Indication: CONSTIPATION
     Dosage: UNK UKN, UNK
     Route: 048

REACTIONS (7)
  - Fall [Fatal]
  - Cardiac failure congestive [Fatal]
  - Myocardial ischaemia [Fatal]
  - Respiratory tract infection [Unknown]
  - C-reactive protein increased [Unknown]
  - Hip fracture [Unknown]
  - Haemoglobin increased [Unknown]
